FAERS Safety Report 9567015 (Version 1)
Quarter: 2013Q3

REPORT INFORMATION
  Report Type: Spontaneous
  Country: US (occurrence: US)
  Receive Date: 20130930
  Receipt Date: 20130930
  Transmission Date: 20140515
  Serious: No
  Sender: FDA-Public Use
  Company Number: US-AMGEN-USASP2012061759

PATIENT
  Age: 63 Year
  Sex: Female

DRUGS (8)
  1. ENBREL [Suspect]
     Indication: PRODUCT USED FOR UNKNOWN INDICATION
     Dosage: 50 MG, QWK
  2. NEXIUM                             /01479302/ [Concomitant]
     Dosage: 20 MG, UNK
  3. JANUVIA [Concomitant]
     Dosage: 100 MG, UNK
  4. METHOTREXATE [Concomitant]
     Dosage: 2.5 MG, UNK
  5. PLAQUENIL                          /00072602/ [Concomitant]
     Dosage: 200 MG, UNK
  6. FOLIC ACID [Concomitant]
     Dosage: UNK
  7. VITAMIN D                          /00107901/ [Concomitant]
     Dosage: 400 UNK, UNK
  8. CALCIUM [Concomitant]
     Dosage: 500 UNK, UNK

REACTIONS (2)
  - Upper respiratory tract infection [Unknown]
  - Cystitis [Unknown]
